FAERS Safety Report 8135115-8 (Version None)
Quarter: 2012Q1

REPORT INFORMATION
  Report Type: 
  Country: None (occurrence: None)
  Receive Date: 20120214
  Receipt Date: 20120206
  Transmission Date: 20120608
  Serious: Yes (Hospitalization)
  Sender: FDA-Public Use
  Company Number: US-BAYER-2011-074219

PATIENT
  Age: 28 Year
  Sex: Female
  Weight: 88 kg

DRUGS (4)
  1. YAZ [Suspect]
     Indication: MENSTRUATION IRREGULAR
  2. YASMIN [Suspect]
     Indication: MENSTRUATION IRREGULAR
  3. YAZ [Suspect]
     Indication: CONTRACEPTION
     Dosage: UNK
     Dates: start: 20060701
  4. YASMIN [Suspect]
     Indication: CONTRACEPTION
     Dosage: UNK
     Dates: start: 20060701

REACTIONS (8)
  - ANXIETY [None]
  - INJURY [None]
  - CHOLELITHIASIS [None]
  - GALLBLADDER DISORDER [None]
  - CHOLECYSTITIS [None]
  - ANHEDONIA [None]
  - EMOTIONAL DISTRESS [None]
  - PAIN [None]
